FAERS Safety Report 5175338-3 (Version None)
Quarter: 2006Q4

REPORT INFORMATION
  Report Type: 
  Country: None (occurrence: None)
  Receive Date: 20061215
  Receipt Date: 20061201
  Transmission Date: 20070319
  Serious: Yes (Other)
  Sender: FDA-Public Use
  Company Number: PHBS2006US18734

PATIENT
  Age: 54 Year
  Sex: Male

DRUGS (5)
  1. PAMIDRONATE DISODIUM [Suspect]
     Indication: HYPERCALCAEMIA
     Dosage: 90 MG, UNK
  2. DEXAMETHASONE [Concomitant]
  3. LENALIDOMIDE [Concomitant]
  4. FILGRASTIM [Concomitant]
  5. DARBEPOETIN ALFA [Concomitant]

REACTIONS (6)
  - BONE DISORDER [None]
  - BONE LESION [None]
  - ERYTHEMA [None]
  - ORAL SOFT TISSUE DISORDER [None]
  - OSTEONECROSIS [None]
  - PAIN IN JAW [None]
